FAERS Safety Report 9830929 (Version 1)
Quarter: 2014Q1

REPORT INFORMATION
  Report Type: Spontaneous
  Country: US (occurrence: US)
  Receive Date: 20140120
  Receipt Date: 20140120
  Transmission Date: 20141002
  Serious: Yes (Hospitalization)
  Sender: FDA-Public Use
  Company Number: PHHY2014US004479

PATIENT
  Age: 69 Year
  Sex: Female

DRUGS (1)
  1. EVEROLIMUS [Suspect]
     Indication: CARCINOID TUMOUR

REACTIONS (7)
  - Cholecystitis acute [Unknown]
  - Abdominal pain [Unknown]
  - Localised intraabdominal fluid collection [Unknown]
  - Pyrexia [Unknown]
  - Nausea [Unknown]
  - Metastases to liver [Unknown]
  - Malignant neoplasm progression [Unknown]
